FAERS Safety Report 8122632-X (Version None)
Quarter: 2012Q1

REPORT INFORMATION
  Report Type: 
  Country: None (occurrence: None)
  Receive Date: 20120208
  Receipt Date: 20120130
  Transmission Date: 20120608
  Serious: Yes (Hospitalization, Other)
  Sender: FDA-Public Use
  Company Number: FR-AMGEN-FRANI2012006180

PATIENT
  Sex: Female

DRUGS (11)
  1. URBANYL [Concomitant]
     Dosage: UNK
     Route: 048
  2. FERROUS FUMARATE [Concomitant]
     Dosage: 65 MG, QD
     Route: 048
  3. DEPAKENE [Concomitant]
     Dosage: UNK
     Route: 048
  4. TERCIAN [Concomitant]
     Dosage: UNK
     Route: 048
  5. FOLIC ACID [Concomitant]
     Dosage: 5 MG, QD
     Route: 048
  6. VITAMIN D [Concomitant]
     Dosage: UNK UNK, QD
  7. ROMIPLOSTIM [Suspect]
     Indication: THROMBOCYTOPENIA
     Dosage: UNK UNK, QWK
     Route: 058
     Dates: start: 20110727
  8. RABEPRAZOLE SODIUM [Concomitant]
     Dosage: UNK
     Route: 048
  9. ALPRAZOLAM [Concomitant]
     Dosage: UNK
     Route: 048
  10. CRESTOR [Concomitant]
     Dosage: 5 MG, QD
     Route: 048
  11. PREDNISONE TAB [Concomitant]
     Dosage: 15 MG, QD

REACTIONS (2)
  - ALOPECIA [None]
  - HAEMOLYTIC ANAEMIA [None]
